FAERS Safety Report 4882935-9 (Version None)
Quarter: 2006Q1

REPORT INFORMATION
  Report Type: 
  Country: None (occurrence: None)
  Receive Date: 20060113
  Receipt Date: 20051221
  Transmission Date: 20060701
  Serious: Yes (Death, Hospitalization)
  Sender: FDA-Public Use
  Company Number: SI200601000353

PATIENT
  Sex: Female

DRUGS (3)
  1. ZYPREXA [Suspect]
  2. MIRTAZAPINE [Concomitant]
  3. BENOZDIAZEPRINE DERIVATIVES [Concomitant]

REACTIONS (4)
  - INFECTION [None]
  - NEUROLEPTIC MALIGNANT SYNDROME [None]
  - PARESIS [None]
  - PULMONARY EMBOLISM [None]
